FAERS Safety Report 23181967 (Version 3)
Quarter: 2024Q1

REPORT INFORMATION
  Report Type: Report from Study
  Country: GB (occurrence: GB)
  Receive Date: 20231114
  Receipt Date: 20240214
  Transmission Date: 20240410
  Serious: Yes (Hospitalization, Other)
  Sender: FDA-Public Use
  Company Number: GB-002147023-NVSC2023GB238020

PATIENT
  Sex: Male

DRUGS (1)
  1. MAYZENT [Suspect]
     Active Substance: SIPONIMOD
     Indication: Multiple sclerosis
     Dosage: TABLET, QD
     Route: 048
     Dates: start: 20230203

REACTIONS (11)
  - Sepsis [Unknown]
  - COVID-19 [Unknown]
  - Kidney infection [Unknown]
  - Urinary tract infection [Unknown]
  - Fall [Unknown]
  - Impaired healing [Unknown]
  - Product dose omission issue [Unknown]
  - Drug ineffective [Unknown]
  - Oedema peripheral [Unknown]
  - Movement disorder [Unknown]
  - Musculoskeletal stiffness [Unknown]
